FAERS Safety Report 21855720 (Version 6)
Quarter: 2024Q1

REPORT INFORMATION
  Report Type: Spontaneous
  Country: US (occurrence: US)
  Receive Date: 20230112
  Receipt Date: 20240319
  Transmission Date: 20240410
  Serious: Yes (Other)
  Sender: FDA-Public Use
  Company Number: US-TEVA-2023-US-2843063

PATIENT
  Age: 8 Year
  Sex: Male

DRUGS (11)
  1. CYCLOSPORINE [Suspect]
     Active Substance: CYCLOSPORINE
     Indication: Skin mass
     Route: 065
  2. INSULIN GLULISINE [Suspect]
     Active Substance: INSULIN GLULISINE
     Indication: Type 1 diabetes mellitus
     Route: 065
  3. INSULIN ASPART [Suspect]
     Active Substance: INSULIN ASPART
     Indication: Type 1 diabetes mellitus
     Dosage: 7 UNITS/KG/DAY; VIA PUMP
     Route: 065
  4. INSULIN ASPART [Suspect]
     Active Substance: INSULIN ASPART
     Indication: Type 1 diabetes mellitus
     Dosage: VIA PUMP
     Route: 065
  5. DAPSONE [Suspect]
     Active Substance: DAPSONE
     Indication: Skin mass
     Route: 065
  6. HUMAN IMMUNOGLOBULIN G [Suspect]
     Active Substance: HUMAN IMMUNOGLOBULIN G
     Indication: Skin mass
     Route: 042
  7. HUMAN IMMUNOGLOBULIN G [Suspect]
     Active Substance: HUMAN IMMUNOGLOBULIN G
     Indication: Skin mass
     Route: 042
  8. DUPILUMAB [Suspect]
     Active Substance: DUPILUMAB
     Indication: Hypersensitivity
     Route: 065
  9. DEXAMETHASONE [Suspect]
     Active Substance: DEXAMETHASONE
     Indication: Hypersensitivity
     Route: 048
  10. CROMOLYN [Suspect]
     Active Substance: CROMOLYN
     Indication: Hypersensitivity
     Route: 065
  11. TACROLIMUS [Suspect]
     Active Substance: TACROLIMUS
     Indication: Hypersensitivity
     Route: 061

REACTIONS (7)
  - Skin mass [Unknown]
  - Treatment failure [Unknown]
  - Malaise [Unknown]
  - Drug hypersensitivity [Not Recovered/Not Resolved]
  - Meningitis aseptic [Unknown]
  - Vomiting [Unknown]
  - Hyperglycaemia [Unknown]
